FAERS Safety Report 7987453-7 (Version None)
Quarter: 2011Q4

REPORT INFORMATION
  Report Type: 
  Country: None (occurrence: None)
  Receive Date: 20111216
  Receipt Date: 20111028
  Transmission Date: 20120403
  Serious: Yes (Other)
  Sender: FDA-Public Use
  Company Number: US-BRISTOL-MYERS SQUIBB COMPANY-16204588

PATIENT
  Age: 21 Year
  Sex: Female
  Weight: 68 kg

DRUGS (5)
  1. NEXIUM [Concomitant]
  2. CLARITIN [Concomitant]
  3. LAMICTAL [Concomitant]
  4. TENEX [Concomitant]
  5. ABILIFY [Suspect]
     Indication: AFFECTIVE DISORDER
     Dosage: STARTED 4-5YRS AGO ALSO TAKEN 1MG, 2MG AND 5MG
     Route: 048
     Dates: end: 20110101

REACTIONS (2)
  - DYSKINESIA [None]
  - WEIGHT INCREASED [None]
